FAERS Safety Report 5943357-2 (Version None)
Quarter: 2008Q4

REPORT INFORMATION
  Report Type: 
  Country: None (occurrence: None)
  Receive Date: 20081105
  Receipt Date: 20081105
  Transmission Date: 20090506
  Serious: Yes (Hospitalization)
  Sender: FDA-Public Use
  Company Number: None

PATIENT
  Age: 60 Year
  Sex: Male
  Weight: 53.4 kg

DRUGS (2)
  1. WARFARIN SODIUM [Suspect]
     Indication: CARDIAC OPERATION
     Dosage: 41.25 MG QWEEK PO
     Route: 048
     Dates: start: 20071231, end: 20081017
  2. WARFARIN SODIUM [Suspect]
     Indication: VASCULAR OPERATION
     Dosage: 41.25 MG QWEEK PO
     Route: 048
     Dates: start: 20071231, end: 20081017

REACTIONS (3)
  - HAEMOPTYSIS [None]
  - HAEMORRHAGE [None]
  - INTERNATIONAL NORMALISED RATIO INCREASED [None]
